FAERS Safety Report 12116294 (Version 1)
Quarter: 2016Q1

REPORT INFORMATION
  Report Type: Spontaneous
  Country: US (occurrence: US)
  Receive Date: 20160225
  Receipt Date: 20160225
  Transmission Date: 20160526
  Serious: No
  Sender: FDA-Public Use
  Company Number: US-MYLANLABS-2015M1023278

PATIENT
  Sex: Female

DRUGS (3)
  1. GENTAMICIN. [Suspect]
     Active Substance: GENTAMICIN
     Indication: WOUND INFECTION
     Dosage: UNK
     Dates: start: 201401, end: 201401
  2. VANCOMYCIN [Suspect]
     Active Substance: VANCOMYCIN
     Indication: WOUND INFECTION
     Dosage: UNK
     Dates: start: 201401, end: 201401
  3. TYGACIL [Suspect]
     Active Substance: TIGECYCLINE
     Indication: WOUND INFECTION
     Dosage: UNK
     Dates: start: 201401, end: 201405

REACTIONS (2)
  - Abdominal discomfort [Not Recovered/Not Resolved]
  - Intestinal transit time decreased [Not Recovered/Not Resolved]

NARRATIVE: CASE EVENT DATE: 201401
